FAERS Safety Report 4911228-6 (Version None)
Quarter: 2006Q1

REPORT INFORMATION
  Report Type: 
  Country: None (occurrence: None)
  Receive Date: 20060209
  Receipt Date: 20060206
  Transmission Date: 20060701
  Serious: Yes (Life-Threatening, Hospitalization, Disabling)
  Sender: FDA-Public Use
  Company Number: HQWYE692307FEB06

PATIENT
  Age: 61 Year
  Sex: Male

DRUGS (2)
  1. CORDARONE [Suspect]
     Indication: ATRIAL FIBRILLATION
     Dosage: 200 MG 1X PER 1 DAY ORAL
     Route: 048
     Dates: start: 20041001, end: 20051201
  2. WARFARIN SODIUM [Concomitant]

REACTIONS (1)
  - ALVEOLITIS FIBROSING [None]
